FAERS Safety Report 6120471-2 (Version None)
Quarter: 2009Q1

REPORT INFORMATION
  Report Type: 
  Country: None (occurrence: None)
  Receive Date: 20090317
  Receipt Date: 20090223
  Transmission Date: 20090719
  Serious: No
  Sender: FDA-Public Use
  Company Number: US-JNJFOC-20090205967

PATIENT
  Age: 34 Year
  Sex: Female

DRUGS (4)
  1. INVEGA [Suspect]
     Indication: DRUG USE FOR UNKNOWN INDICATION
     Route: 048
  2. AMBIEN CR [Concomitant]
     Indication: SLEEP DISORDER THERAPY
     Route: 048
  3. OXYCODONE HCL [Concomitant]
     Indication: PAIN
  4. CYMBALTA [Concomitant]
     Indication: DEPRESSION
     Route: 048

REACTIONS (1)
  - GALACTORRHOEA [None]
